FAERS Safety Report 10061628 (Version 1)
Quarter: 2014Q2

REPORT INFORMATION
  Report Type: Report from Study
  Country: CN (occurrence: CN)
  Receive Date: 20140407
  Receipt Date: 20140407
  Transmission Date: 20141212
  Serious: Yes (Other)
  Sender: FDA-Public Use
  Company Number: CN-ROCHE-1376327

PATIENT
  Age: 52 Year
  Sex: Female

DRUGS (6)
  1. MABTHERA [Suspect]
     Indication: B-CELL LYMPHOMA
     Route: 065
     Dates: start: 20080714
  2. MABTHERA [Suspect]
     Route: 065
     Dates: start: 200906, end: 201104
  3. PREDNISONE [Concomitant]
     Indication: B-CELL LYMPHOMA
     Route: 065
     Dates: start: 20080714
  4. PIRARUBICIN [Concomitant]
     Indication: B-CELL LYMPHOMA
     Route: 065
     Dates: start: 20080714
  5. CYCLOPHOSPHAMIDE [Concomitant]
     Indication: B-CELL LYMPHOMA
     Route: 065
     Dates: start: 20080714
  6. VINCRISTINE [Concomitant]
     Indication: B-CELL LYMPHOMA
     Route: 065
     Dates: start: 20080714

REACTIONS (2)
  - Bone marrow failure [Recovered/Resolved]
  - Hepatitis B [Recovering/Resolving]
